FAERS Safety Report 6050643-7 (Version None)
Quarter: 2009Q1

REPORT INFORMATION
  Report Type: 
  Country: None (occurrence: None)
  Receive Date: 20090126
  Receipt Date: 20090115
  Transmission Date: 20090719
  Serious: Yes (Death, Hospitalization, Other)
  Sender: FDA-Public Use
  Company Number: FR-WYE-H07767509

PATIENT
  Sex: Male

DRUGS (8)
  1. CORDARONE [Suspect]
     Route: 048
     Dates: end: 20080917
  2. CORDARONE [Interacting]
     Route: 048
     Dates: start: 20080918
  3. PREVISCAN [Interacting]
     Dosage: 10 MG EVERY OTHER DAY AND 15 MG THE THIRD DAY
     Route: 048
  4. CARDENSIEL [Concomitant]
     Dosage: DOSE UNKNOWN
     Route: 048
  5. ELISOR [Interacting]
     Route: 048
  6. TRIATEC [Concomitant]
     Dosage: DOSE UNKNOWN
     Route: 048
  7. KARDEGIC [Interacting]
     Route: 048
  8. LEVOTHYROX [Interacting]
     Indication: HYPOTHYROIDISM
     Dosage: 12.5 UG EVERY
     Route: 048
     Dates: start: 20080801

REACTIONS (4)
  - DRUG INTERACTION [None]
  - HAEMORRHAGIC STROKE [None]
  - HYPOTHYROIDISM [None]
  - INTERNATIONAL NORMALISED RATIO INCREASED [None]
